FAERS Safety Report 23857731 (Version 2)
Quarter: 2024Q2

REPORT INFORMATION
  Report Type: Report from Study
  Country: BR (occurrence: None)
  Receive Date: 20240515
  Receipt Date: 20240530
  Transmission Date: 20240716
  Serious: Yes (Death, Other)
  Sender: FDA-Public Use
  Company Number: 2024A111649

PATIENT
  Sex: Female

DRUGS (1)
  1. TEZSPIRE [Suspect]
     Active Substance: TEZEPELUMAB-EKKO
     Dosage: UNKNOWN

REACTIONS (7)
  - Emphysema [Fatal]
  - Fall [Unknown]
  - Joint dislocation [Unknown]
  - Gait disturbance [Unknown]
  - Dysentery [Unknown]
  - Pain in extremity [Unknown]
  - Ligament sprain [Unknown]
